FAERS Safety Report 8185385-5 (Version None)
Quarter: 2012Q1

REPORT INFORMATION
  Report Type: 
  Country: None (occurrence: None)
  Receive Date: 20120305
  Receipt Date: 20120228
  Transmission Date: 20120608
  Serious: Yes (Death)
  Sender: FDA-Public Use
  Company Number: PHHY2011FR31825

PATIENT
  Sex: Female
  Weight: 13 kg

DRUGS (7)
  1. BENOXINATE HYDROCHLORIDE [Concomitant]
     Indication: MYDRIASIS
  2. ATARAX [Concomitant]
     Dosage: 15 MG, UNK
  3. SEVOFLURANE [Suspect]
     Indication: GENERAL ANAESTHESIA
     Dates: start: 20110405
  4. FLUORESCEIN SODIUM [Suspect]
     Indication: MYDRIASIS
     Dosage: 0.5 %, UNK
     Route: 047
     Dates: start: 20110405
  5. XALATAN [Concomitant]
  6. TROPICAMIDE [Concomitant]
  7. PHENYLEPHRINE HCL [Suspect]
     Indication: MYDRIASIS
     Dosage: 1 DROP IN EACH EYE ONE TIME
     Route: 047
     Dates: start: 20110405

REACTIONS (12)
  - CARDIAC FAILURE ACUTE [None]
  - BLOOD PRESSURE DECREASED [None]
  - CYANOSIS [None]
  - CAROTID PULSE ABNORMAL [None]
  - AORTIC STENOSIS [None]
  - HEART RATE DECREASED [None]
  - BRADYCARDIA [None]
  - HEART SOUNDS ABNORMAL [None]
  - VENTRICULAR HYPERTROPHY [None]
  - CARDIAC ARREST [None]
  - CONDUCTION DISORDER [None]
  - ACUTE PULMONARY OEDEMA [None]
